FAERS Safety Report 23029302 (Version 2)
Quarter: 2023Q4

REPORT INFORMATION
  Report Type: Spontaneous
  Country: DE (occurrence: DE)
  Receive Date: 20231004
  Receipt Date: 20231012
  Transmission Date: 20240110
  Serious: Yes (Other)
  Sender: FDA-Public Use
  Company Number: DE-BRISTOL-MYERS SQUIBB COMPANY-2023-100374

PATIENT
  Age: 74 Year
  Sex: Male
  Weight: 107 kg

DRUGS (5)
  1. ELIQUIS [Suspect]
     Active Substance: APIXABAN
     Indication: Cerebrovascular accident prophylaxis
     Route: 048
     Dates: start: 2015
  2. ELIQUIS [Suspect]
     Active Substance: APIXABAN
     Indication: Deep vein thrombosis
  3. TORSEMIDE [Concomitant]
     Active Substance: TORSEMIDE
     Indication: Product used for unknown indication
     Dosage: 10 UNSPECIFIED UNITS AT NIGHT
  4. CANDESARTAN [Concomitant]
     Active Substance: CANDESARTAN
     Indication: Product used for unknown indication
     Dosage: 8 (UNSPECIFIED UNITS) AT NIGHT
  5. BISOPROLOL [Concomitant]
     Active Substance: BISOPROLOL\BISOPROLOL FUMARATE
     Indication: Product used for unknown indication
     Dosage: 2.5 (UNSPECIFIED UNITS) IN MORNING

REACTIONS (3)
  - Haemorrhoids thrombosed [Recovered/Resolved]
  - Retinal vein thrombosis [Recovered/Resolved]
  - Retinal artery occlusion [Recovered/Resolved]

NARRATIVE: CASE EVENT DATE: 20200101
